FAERS Safety Report 14320092 (Version 1)
Quarter: 2017Q4

REPORT INFORMATION
  Report Type: Spontaneous
  Country: US (occurrence: US)
  Receive Date: 20171222
  Receipt Date: 20171222
  Transmission Date: 20180321
  Serious: Yes (Hospitalization, Other)
  Sender: FDA-Public Use
  Company Number: US-TEVA-2017-US-835247

PATIENT
  Age: 33 Year
  Sex: Female

DRUGS (1)
  1. OXYCODONE HYDROCHLORIDE. [Suspect]
     Active Substance: OXYCODONE HYDROCHLORIDE
     Indication: OVERDOSE
     Route: 065

REACTIONS (5)
  - Sepsis [Unknown]
  - Respiratory failure [Unknown]
  - Overdose [Unknown]
  - Pneumonia aspiration [Unknown]
  - Leukoencephalopathy [Recovered/Resolved]
